FAERS Safety Report 20920797 (Version 2)
Quarter: 2022Q2

REPORT INFORMATION
  Report Type: Report from Study
  Country: FR (occurrence: FR)
  Receive Date: 20220606
  Receipt Date: 20220627
  Transmission Date: 20220720
  Serious: Yes (Death, Hospitalization, Other)
  Sender: FDA-Public Use
  Company Number: FR-BRISTOL-MYERS SQUIBB COMPANY-2022-052799

PATIENT
  Age: 61 Year
  Sex: Male
  Weight: 84 kg

DRUGS (6)
  1. APIXABAN [Suspect]
     Active Substance: APIXABAN
     Indication: Pulmonary embolism
     Dosage: 5 MG TWICE A DAY OR 2.5 MG TWICE A DAY ACCORDING TO THE RANDOMIZATION GROUP
     Route: 048
     Dates: start: 20211103, end: 20220429
  2. ALPRAZOLAM [Concomitant]
     Active Substance: ALPRAZOLAM
     Indication: Anxiety
     Route: 048
     Dates: start: 20220502
  3. BISOPROLOL [Concomitant]
     Active Substance: BISOPROLOL
     Indication: Tachycardia
     Route: 048
     Dates: start: 20220507
  4. ACETAMINOPHEN [Concomitant]
     Active Substance: ACETAMINOPHEN
     Indication: Pain
     Route: 048
     Dates: start: 20220504
  5. EUPANTOL [Concomitant]
     Active Substance: PANTOPRAZOLE SODIUM
     Indication: Prophylaxis
     Route: 048
     Dates: start: 20211215
  6. ENOXAPARIN [Concomitant]
     Active Substance: ENOXAPARIN
     Indication: Pulmonary embolism
     Route: 058
     Dates: start: 20210505

REACTIONS (1)
  - Sudden death [Fatal]

NARRATIVE: CASE EVENT DATE: 20220517
